FAERS Safety Report 10361363 (Version 5)
Quarter: 2015Q1

REPORT INFORMATION
  Report Type: Report from Study
  Country: AU (occurrence: AU)
  Receive Date: 20140805
  Receipt Date: 20150216
  Transmission Date: 20150720
  Serious: Yes (Hospitalization, Other)
  Sender: FDA-Public Use
  Company Number: AU-ABBVIE-14K-008-1266791-00

PATIENT
  Age: 40 Year
  Sex: Female

DRUGS (1)
  1. HUMIRA [Suspect]
     Active Substance: ADALIMUMAB
     Indication: CROHN^S DISEASE
     Dosage: FORTNIGHTLY
     Route: 058
     Dates: start: 20140502

REACTIONS (4)
  - Intestinal obstruction [Recovered/Resolved]
  - Cholelithiasis [Recovering/Resolving]
  - Blood iron decreased [Unknown]
  - Enteritis [Recovered/Resolved]

NARRATIVE: CASE EVENT DATE: 20140715
